FAERS Safety Report 16373283 (Version 3)
Quarter: 2019Q2

REPORT INFORMATION
  Report Type: Spontaneous
  Country: BE (occurrence: BE)
  Receive Date: 20190530
  Receipt Date: 20190605
  Transmission Date: 20190711
  Serious: Yes (Hospitalization, Other)
  Sender: FDA-Public Use
  Company Number: BE-PFIZER INC-2019228847

PATIENT
  Age: 46 Year
  Sex: Female

DRUGS (1)
  1. NARDELZINE [Suspect]
     Active Substance: PHENELZINE SULFATE
     Indication: ANTIDEPRESSANT THERAPY
     Dosage: 15 MG, 3X/DAY
     Dates: start: 20150408

REACTIONS (2)
  - Hepatitis fulminant [Unknown]
  - Hepatic failure [Unknown]

NARRATIVE: CASE EVENT DATE: 2015
